FAERS Safety Report 13504997 (Version 1)
Quarter: 2017Q2

REPORT INFORMATION
  Report Type: Spontaneous
  Country: None (occurrence: FR)
  Receive Date: 20170502
  Receipt Date: 20170502
  Transmission Date: 20170830
  Serious: Yes (Hospitalization)
  Sender: FDA-Public Use
  Company Number: FR-MERZ NORTH AMERICA, INC.-17MRZ-00144

PATIENT
  Age: 68 Year
  Sex: Female

DRUGS (4)
  1. ASCLERA [Suspect]
     Active Substance: POLIDOCANOL
     Indication: VARICOSE VEIN
     Route: 042
     Dates: start: 20170220, end: 20170220
  2. LEVOTHYROX [Concomitant]
     Active Substance: LEVOTHYROXINE
  3. DEDROGYL [Concomitant]
     Active Substance: CALCIFEDIOL
  4. DIOSMINE [Concomitant]
     Active Substance: DIOSMIN

REACTIONS (2)
  - Posterior reversible encephalopathy syndrome [Recovered/Resolved]
  - Cerebrovascular accident [Recovered/Resolved]

NARRATIVE: CASE EVENT DATE: 20170225
